FAERS Safety Report 9668574 (Version 3)
Quarter: 2014Q1

REPORT INFORMATION
  Report Type: Report from Study
  Country: US (occurrence: US)
  Receive Date: 20131105
  Receipt Date: 20140122
  Transmission Date: 20141002
  Serious: Yes (Other)
  Sender: FDA-Public Use
  Company Number: US-ROCHE-1293529

PATIENT
  Sex: Female

DRUGS (9)
  1. LUCENTIS [Suspect]
     Indication: CHOROIDAL NEOVASCULARISATION
     Route: 065
     Dates: start: 20131022, end: 20131022
  2. LUCENTIS [Suspect]
     Indication: AGE-RELATED MACULAR DEGENERATION
     Route: 065
     Dates: start: 20120601
  3. LUCENTIS [Suspect]
     Indication: AGE-RELATED MACULAR DEGENERATION
     Dosage: LEFT EYE
     Route: 050
  4. LUCENTIS [Suspect]
     Route: 050
     Dates: start: 2009
  5. AVASTIN [Suspect]
     Indication: PRODUCT USED FOR UNKNOWN INDICATION
     Route: 065
  6. SYSTANE [Concomitant]
     Dosage: AS NEEDED, IN BOTH EYE OU
     Route: 065
     Dates: start: 20131022
  7. BESIVANCE [Concomitant]
     Dosage: DOSE:TID
     Route: 065
  8. LIDOCAINE [Concomitant]
     Indication: PREMEDICATION
     Route: 065
     Dates: start: 20131022
  9. TETRACAINE [Concomitant]
     Indication: PREMEDICATION
     Route: 065
     Dates: start: 20131022

REACTIONS (10)
  - Retinal haemorrhage [Unknown]
  - Visual acuity reduced [Unknown]
  - Visual impairment [Unknown]
  - Vitreous detachment [Unknown]
  - Detachment of retinal pigment epithelium [Unknown]
  - Age-related macular degeneration [Unknown]
  - Ophthalmological examination abnormal [Unknown]
  - Ophthalmological examination abnormal [Unknown]
  - Drug hypersensitivity [Unknown]
  - Glare [Unknown]
